FAERS Safety Report 16490144 (Version 1)
Quarter: 2019Q2

REPORT INFORMATION
  Report Type: Report from Study
  Country: DE (occurrence: DE)
  Receive Date: 20190628
  Receipt Date: 20190628
  Transmission Date: 20190711
  Serious: Yes (Hospitalization, Other)
  Sender: FDA-Public Use
  Company Number: DE-TEVA-2019-DE-1037235

PATIENT
  Age: 31 Year
  Sex: Female

DRUGS (1)
  1. COPAXONE [Suspect]
     Active Substance: GLATIRAMER ACETATE
     Indication: MULTIPLE SCLEROSIS
     Dates: start: 20171206, end: 20171220

REACTIONS (7)
  - Premature rupture of membranes [Recovered/Resolved]
  - Gestational diabetes [Unknown]
  - Maternal exposure during pregnancy [Unknown]
  - Normal newborn [Unknown]
  - Breech presentation [Recovered/Resolved]
  - Hypertension [Unknown]
  - Overweight [Unknown]

NARRATIVE: CASE EVENT DATE: 20171118
